FAERS Safety Report 8438001-9 (Version None)
Quarter: 2012Q2

REPORT INFORMATION
  Report Type: 
  Country: None (occurrence: None)
  Receive Date: 20120614
  Receipt Date: 20120604
  Transmission Date: 20120825
  Serious: No
  Sender: FDA-Public Use
  Company Number: US-AMGEN-USASP2012023924

PATIENT
  Sex: Female
  Weight: 63.492 kg

DRUGS (4)
  1. LIPITOR [Concomitant]
     Indication: HYPERLIPIDAEMIA
     Dosage: 20 MG, QD
     Dates: start: 20120201
  2. PROLIA [Suspect]
     Dosage: 60 MG, Q6MO
     Route: 058
     Dates: start: 20120229
  3. PROLIA [Suspect]
     Indication: OSTEOPOROSIS POSTMENOPAUSAL
     Dosage: 60 MG, Q6MO
     Route: 058
     Dates: start: 20110826
  4. VITAMIN D [Concomitant]
     Indication: OSTEOPOROSIS
     Dosage: UNK UNK, QWK

REACTIONS (3)
  - MUSCULOSKELETAL PAIN [None]
  - BACK PAIN [None]
  - PAIN IN EXTREMITY [None]
